FAERS Safety Report 18344111 (Version 1)
Quarter: 2020Q4

REPORT INFORMATION
  Report Type: Spontaneous
  Country: PL (occurrence: PL)
  Receive Date: 20201005
  Receipt Date: 20201005
  Transmission Date: 20210114
  Serious: Yes (Other)
  Sender: FDA-Public Use
  Company Number: NVSC2020PL263203

PATIENT
  Age: 57 Year
  Sex: Male

DRUGS (5)
  1. VECTIBIX [Suspect]
     Active Substance: PANITUMUMAB
     Indication: COLON CANCER
     Dosage: 6 MG/KG, Q2W (6 MG/KG, BIW (6 MILLIGRAM/KILOGRAM, Q2WK (14 DAYS) 1-HOUR INFUSION, DAY 1))
     Route: 042
     Dates: start: 20200219
  2. OXALIPLATIN. [Suspect]
     Active Substance: OXALIPLATIN
     Indication: COLON CANCER
     Dosage: 85 MG/M2 (85 MILLIGRAM/SQ. METER DAY 1)
     Route: 042
     Dates: start: 20200219
  3. LEVOFOLIC [Suspect]
     Active Substance: LEUCOVORIN
     Indication: COLON CANCER
     Dosage: 100 MG/M2 100 MG/M2 (100 MILLIGRAM/SQ. METER 2-HOUR INFUSION, DAYS 1 - 2)
     Route: 042
     Dates: start: 20200219
  4. FLUOROURACIL. [Suspect]
     Active Substance: FLUOROURACIL
     Indication: COLON CANCER
     Dosage: 600 MG/M2 600 MG/M2 (600 MILLIGRAM/SQ. METER 22-HOUR INFUSION, DAYS 1 - 2)
     Route: 065
  5. FLUOROURACIL. [Suspect]
     Active Substance: FLUOROURACIL
     Dosage: 400 MG/M2 (400 MILLIGRAM/SQ. METER DAYS 1 - 2)
     Route: 040
     Dates: start: 20200219

REACTIONS (10)
  - Neurotoxicity [Unknown]
  - Skin exfoliation [Recovering/Resolving]
  - Thrombocytopenia [Unknown]
  - Weight decreased [Unknown]
  - Dry skin [Recovering/Resolving]
  - Decreased appetite [Unknown]
  - Palmar-plantar erythrodysaesthesia syndrome [Unknown]
  - Rash pustular [Recovering/Resolving]
  - Neutropenia [Unknown]
  - Hypomagnesaemia [Unknown]

NARRATIVE: CASE EVENT DATE: 2020
